FAERS Safety Report 5479239-2 (Version None)
Quarter: 2007Q4

REPORT INFORMATION
  Report Type: 
  Country: None (occurrence: None)
  Receive Date: 20071008
  Receipt Date: 20071001
  Transmission Date: 20080405
  Serious: Yes (Hospitalization, Other)
  Sender: FDA-Public Use
  Company Number: PHBS2007ES16206

PATIENT
  Age: 88 Year
  Sex: Female

DRUGS (2)
  1. DIOVAN HCT [Suspect]
     Indication: HYPERTENSION
     Dosage: 160/12.5, UNK
     Route: 048
     Dates: start: 20060101, end: 20060816
  2. DILUTOL [Suspect]
     Indication: HYPERTENSION
     Dosage: 10 MG, UNK
     Route: 048
     Dates: start: 20060101, end: 20060818

REACTIONS (2)
  - CEREBROVASCULAR ACCIDENT [None]
  - HYPOKALAEMIA [None]
